FAERS Safety Report 26178284 (Version 5)
Quarter: 2025Q4

REPORT INFORMATION
  Report Type: Report from Study
  Country: US (occurrence: US)
  Receive Date: 20251219
  Receipt Date: 20251231
  Transmission Date: 20260118
  Serious: No
  Sender: SANDOZ
  Company Number: US-SANDOZ-SDZ2025US095769

PATIENT
  Age: 13 Year
  Sex: Male

DRUGS (1)
  1. OMNITROPE [Suspect]
     Active Substance: SOMATROPIN
     Indication: Short stature
     Dosage: 2.7 MG, QD
     Dates: start: 20251222

REACTIONS (5)
  - Injection site pain [Unknown]
  - Wrong technique in device usage process [Unknown]
  - Circumstance or information capable of leading to device use error [Unknown]
  - Device leakage [Unknown]
  - Device mechanical issue [Unknown]

NARRATIVE: CASE EVENT DATE: 20251201
